FAERS Safety Report 16104801 (Version 1)
Quarter: 2019Q1

REPORT INFORMATION
  Report Type: Spontaneous
  Country: US (occurrence: US)
  Receive Date: 20190322
  Receipt Date: 20190322
  Transmission Date: 20190418
  Serious: No
  Sender: FDA-Public Use
  Company Number: US-PFIZER INC-2019117462

PATIENT
  Age: 62 Year
  Sex: Male

DRUGS (3)
  1. GABAPENTIN. [Suspect]
     Active Substance: GABAPENTIN
     Dosage: 1200 MG, DAILY (QTY 360 / DAYS SUPPLY 90)
  2. GABAPENTIN. [Suspect]
     Active Substance: GABAPENTIN
     Dosage: 900 MG (3 CAPSULES OF 300MG), 3X/DAY
  3. GABAPENTIN. [Suspect]
     Active Substance: GABAPENTIN
     Indication: PAIN IN EXTREMITY
     Dosage: 300 MG, 3X/DAY

REACTIONS (2)
  - Balance disorder [Unknown]
  - Drug effective for unapproved indication [Unknown]
